FAERS Safety Report 9497711 (Version 1)
Quarter: 2013Q3

REPORT INFORMATION
  Report Type: Spontaneous
  Country: US (occurrence: US)
  Receive Date: 20130904
  Receipt Date: 20130904
  Transmission Date: 20140515
  Serious: No
  Sender: FDA-Public Use
  Company Number: US-AMGEN-USASP2013060547

PATIENT
  Age: 60 Year
  Sex: Female

DRUGS (2)
  1. ENBREL [Suspect]
     Indication: RHEUMATOID ARTHRITIS
     Dosage: 50 MG, EVERY 2 WEEKS
     Route: 065
     Dates: start: 20110413
  2. METHOTREXATE [Concomitant]
     Dosage: UNK

REACTIONS (7)
  - Skin discolouration [Recovered/Resolved]
  - Arthralgia [Not Recovered/Not Resolved]
  - Pain in extremity [Not Recovered/Not Resolved]
  - Pain in jaw [Not Recovered/Not Resolved]
  - Fatigue [Not Recovered/Not Resolved]
  - Foot deformity [Recovered/Resolved]
  - Injection site pain [Recovered/Resolved]
